FAERS Safety Report 17796817 (Version 1)
Quarter: 2020Q2

REPORT INFORMATION
  Report Type: Spontaneous
  Country: CO (occurrence: CO)
  Receive Date: 20200518
  Receipt Date: 20200518
  Transmission Date: 20200714
  Serious: Yes (Other)
  Sender: FDA-Public Use
  Company Number: CO-ROCHE-2600813

PATIENT
  Age: 42 Year
  Sex: Female

DRUGS (2)
  1. COTELLIC [Suspect]
     Active Substance: COBIMETINIB
     Indication: SUPERFICIAL SPREADING MELANOMA STAGE UNSPECIFIED
     Route: 065
  2. ZELBORAF [Suspect]
     Active Substance: VEMURAFENIB
     Indication: SUPERFICIAL SPREADING MELANOMA STAGE UNSPECIFIED
     Route: 065

REACTIONS (1)
  - Skin toxicity [Unknown]
